FAERS Safety Report 14333418 (Version 1)
Quarter: 2017Q4

REPORT INFORMATION
  Report Type: Spontaneous
  Country: US (occurrence: US)
  Receive Date: 20171228
  Receipt Date: 20171228
  Transmission Date: 20180321
  Serious: Yes (Other)
  Sender: FDA-Public Use
  Company Number: US-PFIZER INC-2017547529

PATIENT
  Sex: Female

DRUGS (12)
  1. BENAZEPRIL [Concomitant]
     Active Substance: BENAZEPRIL HYDROCHLORIDE
     Indication: HYPERTENSION
     Dosage: 40 MG, 1X/DAY
  2. IBRANCE [Concomitant]
     Active Substance: PALBOCICLIB
     Dosage: 40 MG, UNK
  3. PRAVASTATIN. [Concomitant]
     Active Substance: PRAVASTATIN
     Indication: BLOOD CHOLESTEROL INCREASED
     Dosage: 40 MG, 1X/DAY
  4. ALENDRONATE SODIUM. [Concomitant]
     Active Substance: ALENDRONATE SODIUM
     Dosage: UNK, WEEKLY (REPORTED AS 70 ,1 IN 1 WK)
  5. XARELTO [Concomitant]
     Active Substance: RIVAROXABAN
     Dosage: 20 MG, 1X/DAY
  6. AROMASIN [Suspect]
     Active Substance: EXEMESTANE
     Dosage: UNK
     Dates: start: 2012
  7. AROMASIN [Suspect]
     Active Substance: EXEMESTANE
     Dosage: 25 MG, UNK
     Route: 048
  8. DILTIAZEM. [Concomitant]
     Active Substance: DILTIAZEM
     Indication: ATRIAL FIBRILLATION
     Dosage: 180 MG, 1X/DAY
     Dates: start: 201706
  9. AROMASIN [Suspect]
     Active Substance: EXEMESTANE
     Indication: BREAST CANCER
     Dosage: 40 MG, 1X/DAY(AT BEDTIME)
     Route: 048
     Dates: start: 2009
  10. SYNTHROID [Suspect]
     Active Substance: LEVOTHYROXINE SODIUM
     Dosage: 50 UG, 1X/DAY
     Route: 048
     Dates: start: 2004
  11. DYAZIDE [Concomitant]
     Active Substance: HYDROCHLOROTHIAZIDE\TRIAMTERENE
     Dosage: 37.5 MG, 1X/DAY
  12. TAMOXIFEN [Concomitant]
     Active Substance: TAMOXIFEN
     Dosage: UNK

REACTIONS (12)
  - Atrial fibrillation [Unknown]
  - Gait inability [Recovered/Resolved with Sequelae]
  - Hypoaesthesia [Unknown]
  - Pain [Unknown]
  - Osteoporosis [Unknown]
  - Pulmonary thrombosis [Unknown]
  - Asthenia [Unknown]
  - Abnormal weight gain [Unknown]
  - Spinal fracture [Recovered/Resolved with Sequelae]
  - Pain in extremity [Unknown]
  - Fall [Recovered/Resolved with Sequelae]
  - Neoplasm recurrence [Unknown]

NARRATIVE: CASE EVENT DATE: 2012
